FAERS Safety Report 22346741 (Version 2)
Quarter: 2023Q2

REPORT INFORMATION
  Report Type: Report from Study
  Country: US (occurrence: US)
  Receive Date: 20230520
  Receipt Date: 20230605
  Transmission Date: 20230721
  Serious: Yes (Other)
  Sender: FDA-Public Use
  Company Number: US-002147023-NVSC2023US114074

PATIENT
  Age: 6 Year
  Sex: Female

DRUGS (3)
  1. ILARIS [Suspect]
     Active Substance: CANAKINUMAB
     Indication: Juvenile idiopathic arthritis
     Dosage: 126 MG, Q4W
     Route: 058
     Dates: start: 20230121
  2. ILARIS [Suspect]
     Active Substance: CANAKINUMAB
     Dosage: 63 MG, QMO
     Route: 058
  3. ILARIS [Suspect]
     Active Substance: CANAKINUMAB
     Dosage: 63 MG/KG, QMO
     Route: 058

REACTIONS (2)
  - Juvenile idiopathic arthritis [Unknown]
  - Pharyngitis [Unknown]

NARRATIVE: CASE EVENT DATE: 20230516
